FAERS Safety Report 5407043-X (Version None)
Quarter: 2007Q3

REPORT INFORMATION
  Report Type: 
  Country: None (occurrence: None)
  Receive Date: 20070807
  Receipt Date: 20070731
  Transmission Date: 20080115
  Serious: Yes (Hospitalization, Other)
  Sender: FDA-Public Use
  Company Number: BR-AVENTIS-200716422GDDC

PATIENT
  Age: 46 Year
  Sex: Female

DRUGS (3)
  1. ARAVA [Suspect]
     Indication: RHEUMATOID ARTHRITIS
     Dosage: DOSE: 1 TABLET
     Route: 048
     Dates: start: 20070301, end: 20070603
  2. LASIX [Concomitant]
     Dosage: DOSE: 1 AMPULE
     Route: 042
     Dates: start: 20070627, end: 20070704
  3. PREDNISONE TAB [Concomitant]
     Indication: ARTHRITIS
     Route: 048
     Dates: start: 20070301, end: 20070603

REACTIONS (22)
  - ANOREXIA [None]
  - DIARRHOEA [None]
  - GENERALISED OEDEMA [None]
  - HEADACHE [None]
  - HEPATOSPLENOMEGALY [None]
  - HYPERTENSION [None]
  - LEUKOPENIA [None]
  - LIVER DISORDER [None]
  - MALAISE [None]
  - ODYNOPHAGIA [None]
  - ORAL PAIN [None]
  - PAIN IN EXTREMITY [None]
  - PHARYNGEAL ULCERATION [None]
  - PRODUCTIVE COUGH [None]
  - PRURITUS [None]
  - PYREXIA [None]
  - RASH [None]
  - RASH MACULAR [None]
  - SEPSIS [None]
  - SKIN EXFOLIATION [None]
  - STEVENS-JOHNSON SYNDROME [None]
  - VOMITING [None]
